FAERS Safety Report 7332539-3 (Version None)
Quarter: 2011Q1

REPORT INFORMATION
  Report Type: 
  Country: None (occurrence: None)
  Receive Date: 20110304
  Receipt Date: 20110224
  Transmission Date: 20110831
  Serious: Yes (Other)
  Sender: FDA-Public Use
  Company Number: JP-ASTRAZENECA-2011SE09786

PATIENT
  Age: 28715 Day
  Sex: Female
  Weight: 50 kg

DRUGS (13)
  1. CRESTOR [Suspect]
     Indication: HYPERCHOLESTEROLAEMIA
     Route: 048
     Dates: start: 20110113, end: 20110210
  2. AMOBAN [Concomitant]
     Route: 048
  3. PURSENNID [Concomitant]
     Route: 048
  4. OMEPRAZON [Concomitant]
     Route: 048
  5. LASIX [Concomitant]
     Route: 048
  6. ITOROL [Concomitant]
     Route: 048
  7. BASEN [Concomitant]
     Route: 048
  8. ALDACTONE [Concomitant]
     Route: 048
  9. SIGMART [Concomitant]
     Route: 048
  10. BAYMYCARD [Concomitant]
     Route: 048
  11. ASPIRIN [Concomitant]
     Route: 048
  12. PLAVIX [Concomitant]
     Route: 048
  13. NIFLAN [Concomitant]
     Dosage: DOSE UNKNOWN
     Route: 047

REACTIONS (1)
  - STEVENS-JOHNSON SYNDROME [None]
